FAERS Safety Report 25956767 (Version 3)
Quarter: 2025Q4

REPORT INFORMATION
  Report Type: Report from Study
  Country: CA (occurrence: CA)
  Receive Date: 20251024
  Receipt Date: 20251103
  Transmission Date: 20260117
  Serious: Yes (Other)
  Sender: Alvotech
  Company Number: CA-JAMP PHARMA CORPORATION-2023-JAM-CA-00792

PATIENT
  Age: 72 Year
  Sex: Female

DRUGS (4)
  1. SIMLANDI [Suspect]
     Active Substance: ADALIMUMAB-RYVK
     Indication: Rheumatoid arthritis
     Dosage: 40 MG, WEEKLY
     Route: 058
     Dates: end: 20251015
  2. PENICILLIN [Suspect]
     Active Substance: PENICILLIN
     Indication: Knee arthroplasty
     Dosage: UNK
     Route: 065
  3. TYENNE [Concomitant]
     Active Substance: TOCILIZUMAB-AAZG
     Indication: Rheumatoid arthritis
     Dosage: UNK, BI-WEEKLY
     Route: 065
  4. SIMLANDI [Suspect]
     Active Substance: ADALIMUMAB-RYVK
     Indication: Rheumatoid arthritis
     Dosage: 40 MG, EVERY 2 WEEKS
     Route: 065
     Dates: start: 20230326

REACTIONS (5)
  - Hallucination [Recovering/Resolving]
  - Illness [Recovering/Resolving]
  - Knee arthroplasty [Unknown]
  - Drug effect less than expected [Not Recovered/Not Resolved]
  - Product communication issue [Unknown]

NARRATIVE: CASE EVENT DATE: 20251003
